FAERS Safety Report 16220358 (Version 2)
Quarter: 2019Q2

REPORT INFORMATION
  Report Type: Spontaneous
  Country: DE (occurrence: DE)
  Receive Date: 20190420
  Receipt Date: 20190430
  Transmission Date: 20190711
  Serious: Yes (Hospitalization, Other)
  Sender: FDA-Public Use
  Company Number: PHHY2019DE087721

PATIENT
  Age: 47 Year
  Sex: Female
  Weight: 124 kg

DRUGS (2)
  1. QUETIAPINE. [Suspect]
     Active Substance: QUETIAPINE
     Indication: PRODUCT USED FOR UNKNOWN INDICATION
     Dosage: UNK
     Route: 048
     Dates: start: 2016
  2. LEVOTHYROXINE SODIUM. [Suspect]
     Active Substance: LEVOTHYROXINE SODIUM
     Indication: PRODUCT USED FOR UNKNOWN INDICATION
     Dosage: UNK
     Route: 065
     Dates: start: 1999

REACTIONS (9)
  - Heparin-induced thrombocytopenia [Unknown]
  - Swelling [Unknown]
  - Varicophlebitis [Recovering/Resolving]
  - Deep vein thrombosis [Recovering/Resolving]
  - Discomfort [Unknown]
  - Pelvic venous thrombosis [Recovering/Resolving]
  - Ovarian cyst [Recovered/Resolved]
  - Pain [Unknown]
  - Erythema [Unknown]

NARRATIVE: CASE EVENT DATE: 20180817
